FAERS Safety Report 7825545-3 (Version None)
Quarter: 2011Q4

REPORT INFORMATION
  Report Type: 
  Country: None (occurrence: None)
  Receive Date: 20111019
  Receipt Date: 20111010
  Transmission Date: 20120403
  Serious: Yes (Hospitalization)
  Sender: FDA-Public Use
  Company Number: US-ABBOTT-11P-163-0863593-00

PATIENT
  Sex: Male

DRUGS (6)
  1. HUMIRA [Suspect]
     Indication: CROHN'S DISEASE
     Route: 058
     Dates: start: 20110401
  2. PENTASA [Concomitant]
     Indication: CROHN'S DISEASE
  3. XANAX [Concomitant]
     Indication: ANXIETY
     Dosage: 0.5MG TO 1.5MG DAILY
     Route: 048
  4. TRAZODONE HCL [Concomitant]
     Indication: INSOMNIA
     Route: 048
  5. OMEPRAZOLE [Concomitant]
     Indication: PRODUCT USED FOR UNKNOWN INDICATION
     Dosage: DAILY DOSE: 20MG
  6. REMIRON [Concomitant]
     Indication: DEPRESSION
     Dosage: DAILY DOSE: 60MG
     Route: 048

REACTIONS (5)
  - ABDOMINAL PAIN [None]
  - NEUROPATHY PERIPHERAL [None]
  - HAEMATOCHEZIA [None]
  - SYNCOPE [None]
  - CROHN'S DISEASE [None]
